FAERS Safety Report 4607175-X (Version None)
Quarter: 2005Q1

REPORT INFORMATION
  Report Type: 
  Country: None (occurrence: None)
  Receive Date: 20050311
  Receipt Date: 20050311
  Transmission Date: 20050727
  Serious: Yes (Hospitalization)
  Sender: FDA-Public Use
  Company Number: None

PATIENT
  Age: 53 Year
  Sex: Female
  Weight: 68.0396 kg

DRUGS (2)
  1. AVONEX [Suspect]
     Indication: MULTIPLE SCLEROSIS
     Dosage: 30 MCG  WKLY
     Dates: start: 19960101, end: 20040101
  2. AVONEX [Suspect]
     Indication: OSTEOMYELITIS
     Dosage: 30 MCG  WKLY
     Dates: start: 19960101, end: 20040101

REACTIONS (2)
  - IMPAIRED HEALING [None]
  - INFECTION [None]
